FAERS Safety Report 8077526-5 (Version None)
Quarter: 2012Q1

REPORT INFORMATION
  Report Type: 
  Country: None (occurrence: None)
  Receive Date: 20120126
  Receipt Date: 20120126
  Transmission Date: 20120608
  Serious: Yes (Other)
  Sender: FDA-Public Use
  Company Number: None

PATIENT
  Age: 50 Year
  Sex: Male
  Weight: 77.3 kg

DRUGS (1)
  1. LAMOTRIGINE [Suspect]
     Indication: BIPOLAR DISORDER
     Dosage: 150 MG 2 PER DAY ORAL 047
     Route: 048
     Dates: start: 20120110, end: 20120124

REACTIONS (6)
  - ABNORMAL BEHAVIOUR [None]
  - PRODUCT SUBSTITUTION ISSUE [None]
  - BIPOLAR DISORDER [None]
  - FATIGUE [None]
  - IRRITABILITY [None]
  - DISEASE RECURRENCE [None]
